FAERS Safety Report 15615028 (Version 2)
Quarter: 2018Q4

REPORT INFORMATION
  Report Type: Report from Study
  Country: None (occurrence: CL)
  Receive Date: 20181114
  Receipt Date: 20181224
  Transmission Date: 20190205
  Serious: Yes (Other)
  Sender: FDA-Public Use
  Company Number: CL-ABBVIE-18K-034-2550547-00

PATIENT
  Sex: Female

DRUGS (2)
  1. HUMIRA [Suspect]
     Active Substance: ADALIMUMAB
     Indication: RHEUMATOID ARTHRITIS
     Route: 058
     Dates: start: 20151201
  2. HUMIRA [Suspect]
     Active Substance: ADALIMUMAB
     Indication: JUVENILE IDIOPATHIC ARTHRITIS
     Route: 058

REACTIONS (6)
  - Procedural pain [Not Recovered/Not Resolved]
  - Gait disturbance [Unknown]
  - Melanocytic naevus [Recovered/Resolved]
  - Swelling [Not Recovered/Not Resolved]
  - Pruritus [Not Recovered/Not Resolved]
  - Post procedural complication [Not Recovered/Not Resolved]

NARRATIVE: CASE EVENT DATE: 2018
